FAERS Safety Report 6287422-1 (Version None)
Quarter: 2009Q3

REPORT INFORMATION
  Report Type: 
  Country: None (occurrence: None)
  Receive Date: 20090727
  Receipt Date: 20090716
  Transmission Date: 20100115
  Serious: Yes (Death)
  Sender: FDA-Public Use
  Company Number: 2009AL004805

PATIENT
  Age: 75 Year

DRUGS (16)
  1. SERTRALINE HYDROCHLORIDE [Suspect]
     Indication: DEPRESSION
     Dosage: 50 MG; PO
     Route: 048
     Dates: start: 20090508
  2. RABEPRAZOLE SODIUM [Concomitant]
  3. TAMSULOSIN [Concomitant]
  4. FINASTERIDE [Concomitant]
  5. ACETAMINOPHEN W/ CODEINE [Concomitant]
  6. ZOPICLONE [Concomitant]
  7. AMITRIPTYLINE HCL [Concomitant]
  8. PARACETAMOL [Concomitant]
  9. GAVISCON [Concomitant]
  10. TEMAZEPAM [Concomitant]
  11. TRIMETHOPRIM [Concomitant]
  12. CITALOPRAM [Concomitant]
  13. BECLOMETASONE [Concomitant]
  14. OMEPRAZOLE [Concomitant]
  15. CEPHALEXIN [Concomitant]
  16. PREDNISOLONE [Concomitant]

REACTIONS (1)
  - COMPLETED SUICIDE [None]
